FAERS Safety Report 5186572-0 (Version None)
Quarter: 2006Q4

REPORT INFORMATION
  Report Type: 
  Country: None (occurrence: None)
  Receive Date: 20061213
  Receipt Date: 20061129
  Transmission Date: 20070319
  Serious: Yes (Other)
  Sender: FDA-Public Use
  Company Number: 2006EU003200

PATIENT
  Sex: Male

DRUGS (2)
  1. PROTOPIC [Suspect]
     Indication: ECZEMA
     Dosage: 0.1%, TOPICAL
     Route: 061
     Dates: start: 20040101, end: 20060101
  2. HYDROXYZINE [Suspect]
     Indication: ECZEMA

REACTIONS (2)
  - IMMUNOSUPPRESSION [None]
  - SINUSITIS [None]
